FAERS Safety Report 6424077-7 (Version None)
Quarter: 2009Q4

REPORT INFORMATION
  Report Type: 
  Country: None (occurrence: None)
  Receive Date: 20091102
  Receipt Date: 20090625
  Transmission Date: 20100525
  Serious: Yes (Death, Other)
  Sender: FDA-Public Use
  Company Number: PHEH2009US13232

PATIENT
  Sex: Male
  Weight: 73.923 kg

DRUGS (11)
  1. EXJADE [Suspect]
     Indication: MYELODYSPLASTIC SYNDROME
     Dosage: 1500 MG, QD
     Route: 048
     Dates: start: 20081211, end: 20090525
  2. COUMADIN [Concomitant]
  3. ASPIRIN [Concomitant]
  4. PROCRIT                            /00909301/ [Concomitant]
  5. COREG [Concomitant]
  6. SYNTHROID [Concomitant]
  7. LIPITOR [Concomitant]
  8. ALDACTONE [Concomitant]
  9. FLOMAX [Concomitant]
  10. CELEXA [Concomitant]
  11. PROTONIX [Concomitant]

REACTIONS (4)
  - CEREBROVASCULAR ACCIDENT [None]
  - FALL [None]
  - HAEMOGLOBIN DECREASED [None]
  - HERPES ZOSTER [None]
